FAERS Safety Report 8133575-X (Version None)
Quarter: 2012Q1

REPORT INFORMATION
  Report Type: 
  Country: None (occurrence: None)
  Receive Date: 20120213
  Receipt Date: 20120201
  Transmission Date: 20120608
  Serious: Yes (Hospitalization, Other)
  Sender: FDA-Public Use
  Company Number: NO-ELI_LILLY_AND_COMPANY-NO201202001460

PATIENT
  Sex: Male

DRUGS (2)
  1. OLANZAPINE [Suspect]
     Indication: SCHIZOPHRENIA, PARANOID TYPE
     Dosage: 300 MG, EVERY THREE WEEKS
     Route: 042
  2. OLANZAPINE [Suspect]
     Dosage: 300 MG, 2/M
     Route: 042

REACTIONS (9)
  - RESPIRATORY DEPRESSION [None]
  - TACHYCARDIA [None]
  - CONFUSIONAL STATE [None]
  - DRUG LEVEL INCREASED [None]
  - SOMNOLENCE [None]
  - NAUSEA [None]
  - DYSARTHRIA [None]
  - PALLOR [None]
  - INCORRECT ROUTE OF DRUG ADMINISTRATION [None]
